FAERS Safety Report 22270178 (Version 1)
Quarter: 2023Q2

REPORT INFORMATION
  Report Type: Spontaneous
  Country: US (occurrence: None)
  Receive Date: 20230428
  Receipt Date: 20230428
  Transmission Date: 20230721
  Serious: Yes (Life-Threatening, Hospitalization, Disabling, Other)
  Sender: FDA-Public Use
  Company Number: None

PATIENT
  Age: 63 Year
  Sex: Female
  Weight: 85.5 kg

DRUGS (11)
  1. ALENDRONATE SODIUM [Suspect]
     Active Substance: ALENDRONATE SODIUM
     Indication: Osteoporosis
     Dosage: FREQUENCY : WEEKLY;?
     Route: 048
     Dates: start: 20230423, end: 20230428
  2. AMLODIPINE BESYLATE [Concomitant]
     Active Substance: AMLODIPINE BESYLATE
  3. HYDRALAZINE [Concomitant]
     Active Substance: HYDRALAZINE HYDROCHLORIDE
  4. ATORVASTATIN [Concomitant]
     Active Substance: ATORVASTATIN
  5. LEVOTHYROXINE [Concomitant]
     Active Substance: LEVOTHYROXINE
  6. VITAMIN D3 [Concomitant]
     Active Substance: CHOLECALCIFEROL
  7. BIOASTIN [Concomitant]
  8. DIETARY SUPPLEMENT [Concomitant]
     Active Substance: DIETARY SUPPLEMENT
  9. VITAMIN B12 [Concomitant]
     Active Substance: CYANOCOBALAMIN
  10. VALSARTAN [Concomitant]
     Active Substance: VALSARTAN
  11. DIETARY SUPPLEMENT [Concomitant]
     Active Substance: DIETARY SUPPLEMENT

REACTIONS (9)
  - Arthralgia [None]
  - Pain in extremity [None]
  - Peripheral swelling [None]
  - Bone pain [None]
  - Fracture [None]
  - Arthralgia [None]
  - Hypertension [None]
  - Dehydration [None]
  - Calcinosis [None]

NARRATIVE: CASE EVENT DATE: 20230423
